FAERS Safety Report 7590277-6 (Version None)
Quarter: 2011Q3

REPORT INFORMATION
  Report Type: 
  Country: None (occurrence: None)
  Receive Date: 20110705
  Receipt Date: 20090109
  Transmission Date: 20111222
  Serious: Yes (Hospitalization, Other)
  Sender: FDA-Public Use
  Company Number: US-BAYER-200910259NA

PATIENT
  Age: 57 Year
  Sex: Male
  Weight: 91 kg

DRUGS (8)
  1. ATIVAN [Concomitant]
     Dosage: UNK
     Dates: start: 20040310
  2. VERSED [Concomitant]
     Dosage: 10 MG, UNK
     Dates: start: 20040310
  3. HEPARIN [Concomitant]
     Dosage: UNK
     Dates: start: 20040310
  4. LASIX [Concomitant]
     Dosage: 20 MG, UNK
     Route: 042
     Dates: start: 20040310
  5. TRASYLOL [Suspect]
     Indication: CORONARY ARTERY BYPASS
     Dosage: 200 ML, LOADIN DOSE AND 50 CC/HR
     Route: 042
     Dates: start: 20040310, end: 20040310
  6. FENTANYL [Concomitant]
     Dosage: UNK
     Dates: start: 20040310
  7. PROPOFOL [Concomitant]
     Dosage: UNK
     Dates: start: 20040310
  8. CONTRAST MEDIA [Concomitant]
     Indication: COMPUTERISED TOMOGRAM
     Dosage: UNK
     Dates: start: 20040309

REACTIONS (8)
  - RENAL FAILURE [None]
  - UNEVALUABLE EVENT [None]
  - CEREBROVASCULAR ACCIDENT [None]
  - PAIN [None]
  - ANXIETY [None]
  - ANHEDONIA [None]
  - GENERAL PHYSICAL HEALTH DETERIORATION [None]
  - INJURY [None]
